FAERS Safety Report 20583108 (Version 1)
Quarter: 2022Q1

REPORT INFORMATION
  Report Type: Spontaneous
  Country: FR (occurrence: None)
  Receive Date: 20220311
  Receipt Date: 20220311
  Transmission Date: 20220423
  Serious: Yes (Other)
  Sender: FDA-Public Use
  Company Number: 2022A088967

PATIENT
  Age: 5612 Day
  Sex: Male
  Weight: 73 kg

DRUGS (10)
  1. SELUMETINIB [Suspect]
     Active Substance: SELUMETINIB
     Indication: Neurofibromatosis
     Route: 048
     Dates: start: 20220211, end: 20220224
  2. AMITRIPTYLINE HYDROCHLORIDE [Concomitant]
     Active Substance: AMITRIPTYLINE HYDROCHLORIDE
     Indication: Neuralgia
     Dosage: DOSAGE OF 21 DROPS DAILY
     Route: 065
  3. DAFALGAN CODEINE [Concomitant]
     Active Substance: ACETAMINOPHEN\CODEINE PHOSPHATE
     Indication: Neuralgia
     Dosage: IF NEEDED
     Route: 065
  4. LIDOCAINE [Concomitant]
     Active Substance: LIDOCAINE
     Indication: Pain
     Dosage: PATCH 1 DAILY
     Route: 065
  5. DOXYCYCLINE [Concomitant]
     Active Substance: DOXYCYCLINE
     Dosage: 100 MG DAILY
     Route: 065
     Dates: start: 20220221
  6. DOXYCYCLINE [Concomitant]
     Active Substance: DOXYCYCLINE
     Dosage: 200 MG DAILY FOR 15 DAYS
     Route: 065
     Dates: start: 20220225
  7. MELATONIN [Concomitant]
     Active Substance: MELATONIN
     Dosage: 2 MG AT SLEEP
     Route: 065
     Dates: start: 20220302
  8. ANTI-ACNE LOTION [Concomitant]
  9. ERYTHROMYCIN [Concomitant]
     Active Substance: ERYTHROMYCIN
  10. SMECTA [Concomitant]
     Active Substance: MONTMORILLONITE

REACTIONS (4)
  - Dermatitis acneiform [Recovering/Resolving]
  - Diarrhoea [Recovered/Resolved]
  - Sleep disorder [Recovering/Resolving]
  - Initial insomnia [Recovering/Resolving]

NARRATIVE: CASE EVENT DATE: 20220212
